FAERS Safety Report 5867425-9 (Version None)
Quarter: 2008Q3

REPORT INFORMATION
  Report Type: 
  Country: None (occurrence: None)
  Receive Date: 20080902
  Receipt Date: 20080902
  Transmission Date: 20090109
  Serious: Yes (Hospitalization)
  Sender: FDA-Public Use
  Company Number: PHEH1996US00467

PATIENT
  Sex: Male

DRUGS (1)
  1. NEORAL [Suspect]
     Route: 048
     Dates: start: 19950521, end: 19960308

REACTIONS (2)
  - LIVER FUNCTION TEST ABNORMAL [None]
  - TRANSPLANT REJECTION [None]
